FAERS Safety Report 6708551-1 (Version None)
Quarter: 2010Q2

REPORT INFORMATION
  Report Type: 
  Country: None (occurrence: None)
  Receive Date: 20100503
  Receipt Date: 20100428
  Transmission Date: 20101027
  Serious: Yes (Other)
  Sender: FDA-Public Use
  Company Number: GB-PFIZER INC-2010048080

PATIENT
  Age: 57 Year
  Sex: Female

DRUGS (3)
  1. BLINDED *NO SUBJECT DRUG [Suspect]
     Indication: BREAST CANCER
     Dosage: UNK
     Route: 048
     Dates: start: 20081204, end: 20100324
  2. BLINDED *PLACEBO [Suspect]
     Indication: BREAST CANCER
     Dosage: UNK
     Route: 048
     Dates: start: 20081204, end: 20100324
  3. BLINDED CELECOXIB [Suspect]
     Indication: BREAST CANCER
     Dosage: UNK
     Route: 048
     Dates: start: 20081204, end: 20100324

REACTIONS (1)
  - COR PULMONALE [None]
